FAERS Safety Report 16146517 (Version 1)
Quarter: 2019Q2

REPORT INFORMATION
  Report Type: Spontaneous
  Country: US (occurrence: US)
  Receive Date: 20190402
  Receipt Date: 20190402
  Transmission Date: 20190711
  Serious: No
  Sender: FDA-Public Use
  Company Number: US-AMGEN-USASP2019048616

PATIENT
  Sex: Female

DRUGS (2)
  1. TYMLOS [Concomitant]
     Active Substance: ABALOPARATIDE
  2. PROLIA [Suspect]
     Active Substance: DENOSUMAB
     Indication: OSTEOPOROSIS
     Dosage: UNK
     Route: 065

REACTIONS (9)
  - Pain in extremity [Unknown]
  - Malaise [Unknown]
  - Alopecia [Unknown]
  - Joint swelling [Unknown]
  - Rash [Recovered/Resolved]
  - Peripheral swelling [Unknown]
  - Pain [Unknown]
  - Neck pain [Unknown]
  - Musculoskeletal stiffness [Unknown]
